FAERS Safety Report 9663709 (Version 2)
Quarter: 2013Q4

REPORT INFORMATION
  Report Type: Report from Study
  Country: US (occurrence: US)
  Receive Date: 20131101
  Receipt Date: 20131101
  Transmission Date: 20140711
  Serious: Yes (Other)
  Sender: FDA-Public Use
  Company Number: PHEH2013US021329

PATIENT
  Sex: Female
  Weight: 72.56 kg

DRUGS (7)
  1. GILENYA [Suspect]
     Indication: MULTIPLE SCLEROSIS
     Dosage: 0.5 MG, QD
     Route: 048
     Dates: start: 20130701
  2. VENLAFAXINE [Concomitant]
     Dosage: 75 MG, BID
  3. OXYBUTYNIN [Concomitant]
     Dosage: 10 MG, QD
  4. CLONAZEPAM [Concomitant]
     Dosage: 0.5 MG, BID
  5. LISINOPRIL [Concomitant]
     Dosage: 10 MG, QD
  6. BACLOFEN [Concomitant]
     Dosage: 20 MG, TID
  7. MODAFINIL [Concomitant]
     Indication: SOMNOLENCE
     Dosage: 200 MG, BID

REACTIONS (9)
  - Knee deformity [Not Recovered/Not Resolved]
  - Urinary tract infection [Not Recovered/Not Resolved]
  - Visual impairment [Not Recovered/Not Resolved]
  - Memory impairment [Not Recovered/Not Resolved]
  - Limb discomfort [Not Recovered/Not Resolved]
  - Fall [Not Recovered/Not Resolved]
  - Alopecia [Not Recovered/Not Resolved]
  - Asthenia [Not Recovered/Not Resolved]
  - Dizziness [Not Recovered/Not Resolved]
